FAERS Safety Report 5123839-6 (Version None)
Quarter: 2006Q4

REPORT INFORMATION
  Report Type: 
  Country: None (occurrence: None)
  Receive Date: 20061010
  Receipt Date: 20060804
  Transmission Date: 20070319
  Serious: Yes (Death, Hospitalization)
  Sender: FDA-Public Use
  Company Number: JP-GLAXOSMITHKLINE-B0357471C

PATIENT
  Age: 40 Year
  Sex: Male

DRUGS (10)
  1. ZIAGEN [Suspect]
     Indication: HIV INFECTION
     Dosage: 600MG PER DAY
     Route: 048
     Dates: start: 20030812, end: 20050419
  2. VIDEX EC [Concomitant]
     Indication: HIV INFECTION
     Route: 048
     Dates: start: 20011002, end: 20050419
  3. STOCRIN [Concomitant]
     Indication: HIV INFECTION
     Route: 048
     Dates: start: 20040831, end: 20050419
  4. KALETRA [Concomitant]
     Indication: HIV INFECTION
     Route: 048
     Dates: start: 20040915, end: 20050419
  5. BACTRIM [Concomitant]
     Route: 048
     Dates: start: 20050401, end: 20050420
  6. RECOMBINATE [Concomitant]
     Indication: FACTOR VIII DEFICIENCY
     Route: 042
     Dates: start: 20050401, end: 20050608
  7. BIOFERMIN [Concomitant]
  8. LOPEMIN [Concomitant]
  9. ZANTAC [Concomitant]
  10. OMEPRAZOLE [Concomitant]

REACTIONS (6)
  - CEREBRAL INFARCTION [None]
  - CONVULSION [None]
  - HEMIPLEGIA [None]
  - HYPOALBUMINAEMIA [None]
  - PNEUMONIA [None]
  - RESPIRATORY FAILURE [None]
